FAERS Safety Report 21665820 (Version 2)
Quarter: 2022Q4

REPORT INFORMATION
  Report Type: Spontaneous
  Country: US (occurrence: US)
  Receive Date: 20221201
  Receipt Date: 20221203
  Transmission Date: 20230113
  Serious: No
  Sender: FDA-Public Use
  Company Number: US-GBT-016553

PATIENT
  Age: 5 Year
  Sex: Female

DRUGS (1)
  1. OXBRYTA [Suspect]
     Active Substance: VOXELOTOR
     Indication: Product used for unknown indication
     Route: 048

REACTIONS (6)
  - Skin hypopigmentation [Not Recovered/Not Resolved]
  - Product dose omission issue [Unknown]
  - Abdominal pain [Recovering/Resolving]
  - Product use complaint [Unknown]
  - Abnormal behaviour [Not Recovered/Not Resolved]
  - Pica [Not Recovered/Not Resolved]

NARRATIVE: CASE EVENT DATE: 20221014
